FAERS Safety Report 5810778-8 (Version None)
Quarter: 2008Q3

REPORT INFORMATION
  Report Type: 
  Country: None (occurrence: None)
  Receive Date: 20080710
  Receipt Date: 20080626
  Transmission Date: 20090109
  Serious: Yes (Hospitalization)
  Sender: FDA-Public Use
  Company Number: 2008BI016326

PATIENT
  Age: 56 Year
  Sex: Female
  Weight: 46.2669 kg

DRUGS (3)
  1. AVONEX [Suspect]
     Indication: MULTIPLE SCLEROSIS
     Dosage: 30 UG; QW; IM, 30 UG; QW; IM
     Route: 030
     Dates: start: 20030101, end: 20030101
  2. AVONEX [Suspect]
     Indication: MULTIPLE SCLEROSIS
     Dosage: 30 UG; QW; IM, 30 UG; QW; IM
     Route: 030
     Dates: start: 20030101, end: 20080501
  3. KLONOPIN [Concomitant]

REACTIONS (9)
  - ARTERIAL DISORDER [None]
  - CONVULSION [None]
  - DRUG HYPERSENSITIVITY [None]
  - DYSPHONIA [None]
  - EJECTION FRACTION DECREASED [None]
  - EYE EXCISION [None]
  - FINGER AMPUTATION [None]
  - PERIPHERAL ARTERY ANEURYSM [None]
  - WEIGHT DECREASED [None]
